FAERS Safety Report 11530239 (Version 1)
Quarter: 2015Q3

REPORT INFORMATION
  Report Type: Spontaneous
  Country: US (occurrence: None)
  Receive Date: 20150921
  Receipt Date: 20150921
  Transmission Date: 20151125
  Serious: Yes (Other)
  Sender: FDA-Public Use
  Company Number: ADR-2015-00926

PATIENT
  Age: 47 Year
  Sex: Male

DRUGS (2)
  1. FENTANYL INTRATHECAL [Suspect]
     Active Substance: FENTANYL
     Indication: PAIN
  2. BACLOFEN INTRATHECAL [Suspect]
     Active Substance: BACLOFEN
     Indication: PAIN

REACTIONS (4)
  - Implant site infection [None]
  - Patient-device incompatibility [None]
  - Implant site dehiscence [None]
  - Implant site erosion [None]
